FAERS Safety Report 8551658-7 (Version None)
Quarter: 2012Q3

REPORT INFORMATION
  Report Type: 
  Country: None (occurrence: None)
  Receive Date: 20120723
  Receipt Date: 20120723
  Transmission Date: 20120928
  Serious: No
  Sender: FDA-Public Use
  Company Number: None

PATIENT
  Age: 75 Year
  Sex: Male
  Weight: 106.5953 kg

DRUGS (1)
  1. DALIRESP [Suspect]
     Indication: CHRONIC OBSTRUCTIVE PULMONARY DISEASE
     Dosage: 1 1 PER DAY
     Dates: start: 20120717, end: 20120719

REACTIONS (4)
  - INSOMNIA [None]
  - BACK PAIN [None]
  - PAIN IN EXTREMITY [None]
  - CHEST PAIN [None]
